FAERS Safety Report 10739420 (Version 8)
Quarter: 2015Q3

REPORT INFORMATION
  Report Type: Spontaneous
  Country: US (occurrence: US)
  Receive Date: 20150126
  Receipt Date: 20150918
  Transmission Date: 20151125
  Serious: Yes (Hospitalization, Other)
  Sender: FDA-Public Use
  Company Number: US-GLAXOSMITHKLINE-A1072469A

PATIENT
  Age: 26 Year
  Sex: Female

DRUGS (14)
  1. FLOLAN [Suspect]
     Active Substance: EPOPROSTENOL SODIUM
     Indication: COR PULMONALE
     Dosage: UNK
     Dates: start: 20130520
  2. COUMADIN [Concomitant]
     Active Substance: WARFARIN SODIUM
  3. ADCIRCA [Concomitant]
     Active Substance: TADALAFIL
  4. FLOLAN [Suspect]
     Active Substance: EPOPROSTENOL SODIUM
     Dosage: 23MG/KG/MIN
  5. TRACLEER [Concomitant]
     Active Substance: BOSENTAN
  6. OPSUMIT [Concomitant]
     Active Substance: MACITENTAN
  7. FLOLAN [Suspect]
     Active Substance: EPOPROSTENOL SODIUM
     Indication: PULMONARY ARTERIAL HYPERTENSION
     Dosage: 20 NG/KG/MIN, 30,000 NG/ML CONCENTRATION, PUMP RATE 58 ML/DAY, VIAL STRENGTH 1.5 MG21 NG/KG/MIN[...]
     Route: 042
     Dates: start: 20130520
  8. FLOLAN [Suspect]
     Active Substance: EPOPROSTENOL SODIUM
     Dosage: 24 NG/KG/MIN (CONCENTRATION 30,000 NG/ML, PUMP RATE 65 ML/DAY, VIAL STRENGTH 1.5 MG), CO
  9. ADEMPAS [Suspect]
     Active Substance: RIOCIGUAT
     Indication: PRODUCT USED FOR UNKNOWN INDICATION
     Dosage: 1.5 MG, DOSING VARIED WITH PATIENT FREQUENTLY TAKING 1 DOSE A DAY AND SOMETIMES 2 OR 3 DOSES PER DAY
     Route: 065
  10. FLOLAN [Suspect]
     Active Substance: EPOPROSTENOL SODIUM
     Indication: SARCOIDOSIS
     Dosage: UNK
     Dates: start: 20130520
  11. FLOLAN [Suspect]
     Active Substance: EPOPROSTENOL SODIUM
     Dosage: 23 NG/KG/MIN (CONCENTRATION 30,000 NG/ML, PUMP RATE 65 ML/DAY, VIAL STRENGTH 1.5 MG), CO
     Route: 042
  12. FLOLAN [Suspect]
     Active Substance: EPOPROSTENOL SODIUM
     Dosage: 23 NG/KG/MIN
     Route: 042
  13. FLOLAN [Suspect]
     Active Substance: EPOPROSTENOL SODIUM
     Dosage: 24 NG/KG/MIN
     Route: 042
  14. FLOLAN [Suspect]
     Active Substance: EPOPROSTENOL SODIUM
     Dosage: 24 NG/KG/MIN CONTINUOUSLY
     Route: 042

REACTIONS (15)
  - Nausea [Unknown]
  - Headache [Recovered/Resolved]
  - Dizziness [Recovered/Resolved]
  - Catheter site haemorrhage [Unknown]
  - Pain [Unknown]
  - Abdominal discomfort [Unknown]
  - Hospitalisation [Not Recovered/Not Resolved]
  - Tooth disorder [Not Recovered/Not Resolved]
  - Diarrhoea [Unknown]
  - Medical device complication [Unknown]
  - Catheter site discharge [Unknown]
  - Palpitations [Unknown]
  - Device related infection [Not Recovered/Not Resolved]
  - Nasal congestion [Recovering/Resolving]
  - Erythema [Unknown]

NARRATIVE: CASE EVENT DATE: 2015
